FAERS Safety Report 24384389 (Version 1)
Quarter: 2024Q4

REPORT INFORMATION
  Report Type: Spontaneous
  Country: US (occurrence: US)
  Receive Date: 20241001
  Receipt Date: 20241001
  Transmission Date: 20250115
  Serious: Yes (Other)
  Sender: AMGEN
  Company Number: US-AMGEN-USASP2024192299

PATIENT
  Age: 75 Year
  Sex: Female

DRUGS (2)
  1. ROMOSOZUMAB [Suspect]
     Active Substance: ROMOSOZUMAB
     Indication: Osteoporosis
     Dosage: UNK, QMO
     Route: 065
  2. TILDRAKIZUMAB [Concomitant]
     Active Substance: TILDRAKIZUMAB
     Indication: Psoriasis
     Dosage: UNK

REACTIONS (2)
  - Stress cardiomyopathy [Recovering/Resolving]
  - Pneumonia [Recovering/Resolving]
